FAERS Safety Report 20235283 (Version 2)
Quarter: 2022Q1

REPORT INFORMATION
  Report Type: Spontaneous
  Country: US (occurrence: US)
  Receive Date: 20211228
  Receipt Date: 20220218
  Transmission Date: 20220424
  Serious: Yes (Hospitalization, Other)
  Sender: FDA-Public Use
  Company Number: US-MLMSERVICE-20211116-3222567-1

PATIENT
  Age: 29 Year
  Sex: Female

DRUGS (12)
  1. OLANZAPINE [Suspect]
     Active Substance: OLANZAPINE
     Indication: Mania
     Dosage: ADDITIONAL AS-NEEDED OLANZAPINE DOSES
     Route: 065
  2. OLANZAPINE [Suspect]
     Active Substance: OLANZAPINE
     Indication: Psychotic disorder
     Dosage: 10 MILLIGRAM, TWO TIMES A DAY
     Route: 065
  3. OLANZAPINE [Suspect]
     Active Substance: OLANZAPINE
     Dosage: 5 MILLIGRAM, ONCE A DAY
     Route: 065
  4. OLANZAPINE [Suspect]
     Active Substance: OLANZAPINE
     Dosage: OLANZAPINE WAS DECREASED
     Route: 065
  5. VALPROATE SODIUM [Concomitant]
     Active Substance: VALPROATE SODIUM
     Indication: Product used for unknown indication
     Dosage: UNK
     Route: 065
  6. CLOZAPINE [Concomitant]
     Active Substance: CLOZAPINE
     Indication: Product used for unknown indication
     Dosage: UNK MILLIGRAM
     Route: 065
  7. CLOZAPINE [Concomitant]
     Active Substance: CLOZAPINE
     Dosage: 25 MILLIGRAM
     Route: 065
  8. CLOZAPINE [Concomitant]
     Active Substance: CLOZAPINE
     Dosage: 75 MILLIGRAM, DAILY
     Route: 065
  9. LITHIUM [Concomitant]
     Active Substance: LITHIUM
     Indication: Psychotic disorder
     Dosage: 900 MILLIGRAM, TWO TIMES A DAY
     Route: 065
  10. LITHIUM [Concomitant]
     Active Substance: LITHIUM
     Indication: Mania
  11. RISPERIDONE [Concomitant]
     Active Substance: RISPERIDONE
     Indication: Psychotic disorder
     Dosage: 6 MILLIGRAM, ONCE A DAY
     Route: 065
  12. RISPERIDONE [Concomitant]
     Active Substance: RISPERIDONE
     Indication: Mania

REACTIONS (2)
  - Aggression [Recovered/Resolved]
  - Agitation [Recovered/Resolved]
